FAERS Safety Report 5230530-4 (Version None)
Quarter: 2007Q1

REPORT INFORMATION
  Report Type: 
  Country: None (occurrence: None)
  Receive Date: 20070206
  Receipt Date: 20070131
  Transmission Date: 20070707
  Serious: Yes (Death)
  Sender: FDA-Public Use
  Company Number: US-GLAXOSMITHKLINE-A0637818A

PATIENT
  Age: 54 Year
  Sex: Female

DRUGS (4)
  1. COREG [Suspect]
     Indication: CARDIAC FAILURE CONGESTIVE
     Dosage: 12.5MG TWICE PER DAY
     Route: 048
  2. ASPIRIN [Concomitant]
  3. LASIX [Concomitant]
  4. POTASSIUM ACETATE [Concomitant]

REACTIONS (2)
  - DEATH [None]
  - HEPATIC ENZYME INCREASED [None]
